FAERS Safety Report 8459421-2 (Version None)
Quarter: 2012Q2

REPORT INFORMATION
  Report Type: 
  Country: None (occurrence: None)
  Receive Date: 20120622
  Receipt Date: 20120616
  Transmission Date: 20120825
  Serious: Yes (Other)
  Sender: FDA-Public Use
  Company Number: US-JNJFOC-20120609220

PATIENT
  Sex: Female
  Weight: 54.43 kg

DRUGS (3)
  1. NUCYNTA [Suspect]
     Indication: HERPES ZOSTER
     Dosage: 4-6 HOURS AS NEEDED
     Route: 048
     Dates: start: 20120501
  2. NEURONTIN [Concomitant]
     Indication: HERPES ZOSTER
     Dosage: THREE TIMES A DAY
     Route: 048
     Dates: start: 20120401
  3. XANAX [Concomitant]
     Indication: SLEEP DISORDER
     Dosage: AS NEEDED
     Route: 048

REACTIONS (7)
  - SOMNOLENCE [None]
  - ABNORMAL BEHAVIOUR [None]
  - NAUSEA [None]
  - INSOMNIA [None]
  - DRUG INEFFECTIVE [None]
  - DIZZINESS [None]
  - NERVOUSNESS [None]
